FAERS Safety Report 8998041 (Version 1)
Quarter: 2013Q1

REPORT INFORMATION
  Report Type: Spontaneous
  Country: US (occurrence: US)
  Receive Date: 20130104
  Receipt Date: 20130104
  Transmission Date: 20140127
  Serious: Yes (Death, Congenital Anomaly, Other)
  Sender: FDA-Public Use
  Company Number: US-009507513-1301USA001511

PATIENT
  Sex: Female

DRUGS (6)
  1. SINGULAIR [Suspect]
     Dosage: 1 TAB, UNK
  2. CORTANCYL [Concomitant]
  3. ORELOX [Concomitant]
  4. VIRLIX [Concomitant]
  5. FLUMUCIL [Concomitant]
  6. PNEUMOREL [Concomitant]

REACTIONS (4)
  - Spina bifida [Fatal]
  - Abortion induced [Fatal]
  - Exposure during pregnancy [Unknown]
  - Arnold-Chiari malformation [Unknown]
